FAERS Safety Report 9217140 (Version 1)
Quarter: 2013Q2

REPORT INFORMATION
  Report Type: Spontaneous
  Country: US (occurrence: US)
  Receive Date: 20130408
  Receipt Date: 20130408
  Transmission Date: 20140414
  Serious: No
  Sender: FDA-Public Use
  Company Number: US-ROXANE LABORATORIES, INC.-2013-RO-00406RO

PATIENT
  Sex: Male

DRUGS (1)
  1. AZATHIOPRINE [Suspect]

REACTIONS (1)
  - Lip swelling [Unknown]
